FAERS Safety Report 13183080 (Version 1)
Quarter: 2017Q1

REPORT INFORMATION
  Report Type: Spontaneous
  Country: US (occurrence: US)
  Receive Date: 20170202
  Receipt Date: 20170202
  Transmission Date: 20170428
  Serious: Yes (Other)
  Sender: FDA-Public Use
  Company Number: None

PATIENT
  Age: 65 Year
  Sex: Female

DRUGS (1)
  1. METFORMIN 500MG TABLET ZYDUS [Suspect]
     Active Substance: METFORMIN HYDROCHLORIDE
     Dosage: TAKES 2 TABLETS TWICE A DAY WITH MEALS
     Route: 048

REACTIONS (3)
  - Glycosylated haemoglobin increased [None]
  - Blood glucose increased [None]
  - Product quality issue [None]

NARRATIVE: CASE EVENT DATE: 20170128
